FAERS Safety Report 4551861-7 (Version None)
Quarter: 2005Q1

REPORT INFORMATION
  Report Type: 
  Country: None (occurrence: None)
  Receive Date: 20050112
  Receipt Date: 20041230
  Transmission Date: 20050727
  Serious: Yes (Other)
  Sender: FDA-Public Use
  Company Number: A03200402062

PATIENT
  Age: 69 Year
  Sex: Male
  Weight: 74.8435 kg

DRUGS (4)
  1. OXALIPLATIN [Suspect]
     Indication: RECTAL CANCER METASTATIC
     Dosage: 100 MG/M2 Q2W - INTRAVENOUS NOS
     Route: 042
     Dates: start: 20040101, end: 20040101
  2. LEUCOVORIN [Concomitant]
  3. FLUOROURACIL [Concomitant]
  4. BEVACIZUMAB [Concomitant]

REACTIONS (4)
  - BALANCE DISORDER [None]
  - DEMYELINATION [None]
  - NECK INJURY [None]
  - NUCLEAR MAGNETIC RESONANCE IMAGING BRAIN ABNORMAL [None]
